APPROVED DRUG PRODUCT: SOLIFENACIN SUCCINATE
Active Ingredient: SOLIFENACIN SUCCINATE
Strength: 5MG
Dosage Form/Route: TABLET;ORAL
Application: A207477 | Product #001
Applicant: ACCORD HEALTHCARE INC
Approved: Jan 4, 2022 | RLD: No | RS: No | Type: DISCN